FAERS Safety Report 4317197-4 (Version None)
Quarter: 2004Q1

REPORT INFORMATION
  Report Type: 
  Country: None (occurrence: None)
  Receive Date: 20040317
  Receipt Date: 20040128
  Transmission Date: 20041129
  Serious: Yes (Other)
  Sender: FDA-Public Use
  Company Number: 2004SA000013

PATIENT
  Age: 14 Year
  Sex: Female
  Weight: 62.8 kg

DRUGS (2)
  1. THYMOGLOBULIN [Suspect]
     Indication: BONE MARROW CONDITIONING REGIMEN
     Dosage: DAILY; INTRAVENOUS
     Route: 042
     Dates: start: 20040126, end: 20040127
  2. CYCLOPHOSPHAMIDE [Concomitant]

REACTIONS (5)
  - CHEST DISCOMFORT [None]
  - CHILLS [None]
  - HYPOTENSION [None]
  - PYREXIA [None]
  - RASH [None]
